FAERS Safety Report 4654238-9 (Version None)
Quarter: 2005Q2

REPORT INFORMATION
  Report Type: 
  Country: None (occurrence: None)
  Receive Date: 20050404
  Receipt Date: 20041213
  Transmission Date: 20051028
  Serious: No
  Sender: FDA-Public Use
  Company Number: USA041286002

PATIENT
  Age: 54 Year
  Sex: Female
  Weight: 75 kg

DRUGS (4)
  1. CYMBALTA [Suspect]
     Indication: FIBROMYALGIA
     Dosage: 30 MG DAY
     Dates: start: 20041208
  2. PROZAC [Suspect]
  3. PROZAC [Suspect]
     Dates: end: 19950101
  4. NAPROSYN (NAPROXEN MEPHA) [Concomitant]

REACTIONS (6)
  - ASTHENIA [None]
  - BONE DENSITY DECREASED [None]
  - INCREASED APPETITE [None]
  - INSOMNIA [None]
  - NERVOUSNESS [None]
  - TINNITUS [None]
